FAERS Safety Report 6708264-6 (Version None)
Quarter: 2010Q2

REPORT INFORMATION
  Report Type: 
  Country: None (occurrence: None)
  Receive Date: 20100503
  Receipt Date: 20090908
  Transmission Date: 20101027
  Serious: No
  Sender: FDA-Public Use
  Company Number: US-ASTRAZENECA-2009SE12053

PATIENT
  Sex: Female
  Weight: 55.3 kg

DRUGS (2)
  1. NEXIUM [Suspect]
     Indication: GASTROOESOPHAGEAL REFLUX DISEASE
     Route: 048
  2. VITAMINS [Concomitant]

REACTIONS (2)
  - ALOPECIA [None]
  - HAIR TEXTURE ABNORMAL [None]
